FAERS Safety Report 18451628 (Version 1)
Quarter: 2020Q4

REPORT INFORMATION
  Report Type: Report from Study
  Country: US (occurrence: US)
  Receive Date: 20201102
  Receipt Date: 20201102
  Transmission Date: 20210114
  Serious: Yes (Hospitalization, Other)
  Sender: FDA-Public Use
  Company Number: US-EMD SERONO-9152578

PATIENT
  Age: 72 Year
  Sex: Female

DRUGS (2)
  1. REBIF [Suspect]
     Active Substance: INTERFERON BETA-1A
     Dosage: PREVIOUSLY USED REBIF PREFILLED SYRINGE.
     Route: 058
     Dates: start: 20170501
  2. REBIF [Suspect]
     Active Substance: INTERFERON BETA-1A
     Indication: PRODUCT USED FOR UNKNOWN INDICATION
     Route: 058
     Dates: start: 20110517, end: 20170201

REACTIONS (6)
  - Hip arthroplasty [Unknown]
  - Pancreatic carcinoma [Recovering/Resolving]
  - Hunger [Not Recovered/Not Resolved]
  - Intestinal obstruction [Unknown]
  - Asthenia [Unknown]
  - Hypophagia [Not Recovered/Not Resolved]

NARRATIVE: CASE EVENT DATE: 2019
